FAERS Safety Report 23321473 (Version 1)
Quarter: 2023Q4

REPORT INFORMATION
  Report Type: Spontaneous
  Country: AU (occurrence: AU)
  Receive Date: 20231220
  Receipt Date: 20231220
  Transmission Date: 20240109
  Serious: Yes (Other)
  Sender: FDA-Public Use
  Company Number: AU-PFIZER INC-PV202300202883

PATIENT
  Sex: Female

DRUGS (10)
  1. XELJANZ [Interacting]
     Active Substance: TOFACITINIB CITRATE
  2. ACETAMINOPHEN [Interacting]
     Active Substance: ACETAMINOPHEN
  3. ESOMEPRAZOLE MAGNESIUM [Interacting]
     Active Substance: ESOMEPRAZOLE MAGNESIUM
     Dosage: GASTRO-RESISTANT TABLET
     Route: 048
  4. TRAMADOL HYDROCHLORIDE [Interacting]
     Active Substance: TRAMADOL HYDROCHLORIDE
  5. AMLODIPINE [Interacting]
     Active Substance: AMLODIPINE BESYLATE
  6. ESCITALOPRAM OXALATE [Interacting]
     Active Substance: ESCITALOPRAM OXALATE
  7. FLUOXETINE HYDROCHLORIDE [Interacting]
     Active Substance: FLUOXETINE HYDROCHLORIDE
  8. MOCLOBEMIDE [Interacting]
     Active Substance: MOCLOBEMIDE
  9. VALSARTAN [Interacting]
     Active Substance: VALSARTAN
  10. VENLAFAXINE HYDROCHLORIDE [Interacting]
     Active Substance: VENLAFAXINE HYDROCHLORIDE

REACTIONS (8)
  - Suicide attempt [Unknown]
  - Serotonin syndrome [Unknown]
  - Acute kidney injury [Unknown]
  - Major depression [Unknown]
  - Drug interaction [Unknown]
  - Physical deconditioning [Unknown]
  - Intentional overdose [Unknown]
  - Metabolic acidosis [Unknown]
